FAERS Safety Report 8595867-X (Version None)
Quarter: 2012Q3

REPORT INFORMATION
  Report Type: 
  Country: None (occurrence: None)
  Receive Date: 20120815
  Receipt Date: 20120806
  Transmission Date: 20120928
  Serious: Yes (Hospitalization)
  Sender: FDA-Public Use
  Company Number: US-VIROPHARMA INCORPORATED-20120725CINRY3194

PATIENT
  Sex: Female

DRUGS (2)
  1. CINRYZE [Suspect]
     Indication: HEREDITARY ANGIOEDEMA
     Dosage: UNKNOWN
     Dates: end: 20120401
  2. CINRYZE [Suspect]
     Dates: start: 20120701

REACTIONS (2)
  - COMPARTMENT SYNDROME [None]
  - HEREDITARY ANGIOEDEMA [None]
